FAERS Safety Report 5441300-6 (Version None)
Quarter: 2007Q3

REPORT INFORMATION
  Report Type: 
  Country: None (occurrence: None)
  Receive Date: 20070903
  Receipt Date: 20070828
  Transmission Date: 20080115
  Serious: Yes (Other)
  Sender: FDA-Public Use
  Company Number: US-MERCK-0706USA01972

PATIENT
  Age: 73 Year
  Sex: Female
  Weight: 68 kg

DRUGS (13)
  1. JANUVIA [Suspect]
     Indication: DIABETES MELLITUS
     Route: 048
     Dates: start: 20070418, end: 20070425
  2. NORVASC [Concomitant]
     Route: 065
     Dates: end: 20070508
  3. SLOW-MAG [Concomitant]
     Route: 048
  4. BENICAR [Concomitant]
     Route: 048
  5. PRILOSEC [Concomitant]
     Route: 048
  6. PLAVIX [Concomitant]
     Route: 065
     Dates: end: 20070430
  7. FERROUS SULFATE [Concomitant]
     Route: 048
  8. TOPROL-XL [Concomitant]
     Route: 048
  9. COLCHICINE [Concomitant]
     Route: 065
  10. OMEGA-3 MARINE TRIGLYCERIDES [Concomitant]
     Route: 048
  11. VITAMIN D (UNSPECIFIED) [Concomitant]
     Route: 048
  12. FEMARA [Concomitant]
     Route: 048
  13. CALCIUM (UNSPECIFIED) [Concomitant]
     Route: 065

REACTIONS (3)
  - PRURITUS [None]
  - RASH GENERALISED [None]
  - SOMNOLENCE [None]
